FAERS Safety Report 16562059 (Version 1)
Quarter: 2019Q3

REPORT INFORMATION
  Report Type: Spontaneous
  Country: IT (occurrence: IT)
  Receive Date: 20190711
  Receipt Date: 20190711
  Transmission Date: 20191004
  Serious: Yes (Hospitalization)
  Sender: FDA-Public Use
  Company Number: IT-MYLANLABS-2019M1063747

PATIENT
  Age: 34 Year
  Sex: Male

DRUGS (4)
  1. TRIMETON [Concomitant]
     Active Substance: CHLORPHENIRAMINE MALEATE
  2. ZANTAC [Concomitant]
     Active Substance: RANITIDINE HYDROCHLORIDE
  3. URBASON                            /00049601/ [Concomitant]
     Active Substance: METHYLPREDNISOLONE
  4. LEVOFLOXACIN. [Suspect]
     Active Substance: LEVOFLOXACIN
     Indication: PNEUMONITIS
     Dosage: 500 MILLIGRAM, TOTAL
     Route: 048
     Dates: start: 20180402, end: 20180402

REACTIONS (9)
  - Hypersensitivity [Unknown]
  - Urticaria [Unknown]
  - Lacrimation increased [Unknown]
  - Rhinitis [Unknown]
  - Eyelid oedema [Unknown]
  - Chills [Unknown]
  - Strangury [Unknown]
  - Pneumonitis [Unknown]
  - Pyrexia [Unknown]

NARRATIVE: CASE EVENT DATE: 20180402
